FAERS Safety Report 8126369-2 (Version None)
Quarter: 2012Q1

REPORT INFORMATION
  Report Type: 
  Country: None (occurrence: None)
  Receive Date: 20120209
  Receipt Date: 20120202
  Transmission Date: 20120608
  Serious: Yes (Other)
  Sender: FDA-Public Use
  Company Number: US-US-EMD SERONO, INC.-7109213

PATIENT
  Sex: Female
  Weight: 79 kg

DRUGS (6)
  1. LEVOTHYROXINE SODIUM [Concomitant]
  2. RAMIPRIL [Concomitant]
  3. REBIF [Suspect]
     Indication: MULTIPLE SCLEROSIS
     Route: 058
     Dates: start: 20060801
  4. ACETYLSALICYLIC ACID SRT [Concomitant]
  5. METOCLOPRAMIDE [Concomitant]
  6. TRICOR [Concomitant]

REACTIONS (2)
  - ATRIAL FIBRILLATION [None]
  - MIGRAINE [None]
